FAERS Safety Report 14700011 (Version 6)
Quarter: 2018Q3

REPORT INFORMATION
  Report Type: Report from Study
  Country: JP (occurrence: JP)
  Receive Date: 20180330
  Receipt Date: 20180726
  Transmission Date: 20181010
  Serious: Yes (Hospitalization)
  Sender: FDA-Public Use
  Company Number: JP-PFIZER INC-2018122240

PATIENT
  Age: 56 Year
  Sex: Male
  Weight: 63.1 kg

DRUGS (11)
  1. BASEN [Concomitant]
     Active Substance: VOGLIBOSE
     Indication: DIABETES MELLITUS
     Dosage: UNK
     Dates: start: 2010, end: 20180317
  2. MERCAZOLE [Suspect]
     Active Substance: CARBIMAZOLE
     Dosage: 3 TABLET, 1 TIME/DAY
     Route: 048
     Dates: start: 20180228, end: 20180317
  3. OLMETEC [Concomitant]
     Active Substance: OLMESARTAN MEDOXOMIL
     Indication: HYPERTENSION
     Dosage: UNK
     Dates: start: 20180214, end: 20180317
  4. AVELUMAB [Suspect]
     Active Substance: AVELUMAB
     Indication: RENAL CELL CARCINOMA
     Dosage: 623 MG, EVERY 2 WEEKS
     Route: 042
     Dates: start: 20171122
  5. MERCAZOLE [Suspect]
     Active Substance: CARBIMAZOLE
     Indication: THYROID DISORDER
     Dosage: 2 TABLET, 3 TIMES/DAY
     Route: 048
     Dates: start: 20180122, end: 20180227
  6. METFORMIN HYDROCHLORIDE. [Concomitant]
     Active Substance: METFORMIN HYDROCHLORIDE
     Indication: DIABETES MELLITUS
     Dosage: UNK
     Dates: start: 20171111, end: 20180317
  7. DELLEGRA [Concomitant]
     Active Substance: FEXOFENADINE HYDROCHLORIDE\PSEUDOEPHEDRINE HYDROCHLORIDE
     Indication: SEASONAL ALLERGY
     Dosage: UNK
     Dates: start: 2010, end: 20180317
  8. ATORVASTATIN [Concomitant]
     Active Substance: ATORVASTATIN
     Indication: DYSLIPIDAEMIA
     Dosage: UNK
     Dates: start: 2010, end: 20180317
  9. AMLODIPINE [Concomitant]
     Active Substance: AMLODIPINE BESYLATE
     Indication: HYPERTENSION
     Dosage: UNK
     Dates: start: 20180214, end: 20180317
  10. INLYTA [Suspect]
     Active Substance: AXITINIB
     Indication: RENAL CELL CARCINOMA
     Dosage: 10 MG, TWICE DAILY, CONTINUOUS
     Route: 048
     Dates: start: 20171122
  11. INDERAL [Concomitant]
     Active Substance: PROPRANOLOL HYDROCHLORIDE
     Indication: THYROID DISORDER
     Dosage: 1 TABLET, 3 TIMES/DAY
     Route: 048
     Dates: start: 20180119, end: 20180317

REACTIONS (1)
  - Febrile neutropenia [Recovered/Resolved]

NARRATIVE: CASE EVENT DATE: 20180317
